FAERS Safety Report 8362943-6 (Version None)
Quarter: 2012Q1

REPORT INFORMATION
  Report Type: 
  Country: None (occurrence: None)
  Receive Date: 20120323
  Receipt Date: 20110225
  Transmission Date: 20120608
  Serious: Yes (Hospitalization)
  Sender: FDA-Public Use
  Company Number: 163-21880-11023221

PATIENT
  Age: 67 Year
  Sex: Female
  Weight: 64.5 kg

DRUGS (2)
  1. REVLIMID [Suspect]
     Indication: MULTIPLE MYELOMA
     Dosage: 25 MG,1 IN 1 D, PO; 10 MG, DAILY FOR 21 DAYS, PO
     Route: 048
     Dates: start: 20110201
  2. REVLIMID [Suspect]
     Indication: MULTIPLE MYELOMA
     Dosage: 25 MG,1 IN 1 D, PO; 10 MG, DAILY FOR 21 DAYS, PO
     Route: 048
     Dates: start: 20081101, end: 20110114

REACTIONS (3)
  - FATIGUE [None]
  - INSOMNIA [None]
  - DIARRHOEA [None]
